FAERS Safety Report 24792751 (Version 2)
Quarter: 2025Q2

REPORT INFORMATION
  Report Type: Report from Study
  Country: CN (occurrence: CN)
  Receive Date: 20241231
  Receipt Date: 20250623
  Transmission Date: 20250717
  Serious: Yes (Hospitalization, Disabling, Other)
  Sender: Vantive US Healthcare
  Company Number: CN-VANTIVE-2024VAN022017

PATIENT
  Age: 60 Year
  Sex: Female
  Weight: 47 kg

DRUGS (11)
  1. CALCIUM CHLORIDE\DEXTROSE\MAGNESIUM CHLORIDE\SODIUM CHLORIDE\SODIUM LA [Suspect]
     Active Substance: CALCIUM CHLORIDE\DEXTROSE\MAGNESIUM CHLORIDE\SODIUM CHLORIDE\SODIUM LACTATE
     Indication: Renal impairment
     Route: 033
     Dates: start: 20241016, end: 20241119
  2. CALCIUM CHLORIDE\DEXTROSE\MAGNESIUM CHLORIDE\SODIUM CHLORIDE\SODIUM LA [Suspect]
     Active Substance: CALCIUM CHLORIDE\DEXTROSE\MAGNESIUM CHLORIDE\SODIUM CHLORIDE\SODIUM LACTATE
     Route: 033
     Dates: start: 20241202
  3. EXTRANEAL [Suspect]
     Active Substance: CALCIUM CHLORIDE\ICODEXTRIN\MAGNESIUM CHLORIDE\SODIUM CHLORIDE\SODIUM LACTATE
     Indication: Renal impairment
     Route: 033
     Dates: start: 20241016, end: 20241119
  4. EXTRANEAL [Suspect]
     Active Substance: CALCIUM CHLORIDE\ICODEXTRIN\MAGNESIUM CHLORIDE\SODIUM CHLORIDE\SODIUM LACTATE
     Route: 033
     Dates: start: 20241202
  5. UNSPECIFIED INGREDIENT [Suspect]
     Active Substance: UNSPECIFIED INGREDIENT
     Route: 065
  6. SACUBITRIL\VALSARTAN [Concomitant]
     Active Substance: SACUBITRIL\VALSARTAN
     Indication: Renal impairment
     Route: 048
     Dates: start: 20240726
  7. TERAZOSIN HYDROCHLORIDE [Concomitant]
     Active Substance: TERAZOSIN HYDROCHLORIDE
     Indication: Renal impairment
     Route: 048
     Dates: start: 20240726
  8. CLONIDINE HYDROCHLORIDE [Concomitant]
     Active Substance: CLONIDINE HYDROCHLORIDE
     Indication: Renal impairment
     Route: 048
     Dates: start: 202310
  9. CALCITRIOL [Concomitant]
     Active Substance: CALCITRIOL
     Indication: Renal impairment
     Route: 048
     Dates: start: 20190610
  10. ESTAZOLAM [Concomitant]
     Active Substance: ESTAZOLAM
     Indication: Renal impairment
     Route: 048
     Dates: start: 20240628
  11. AROTINOLOL HYDROCHLORIDE [Concomitant]
     Active Substance: AROTINOLOL HYDROCHLORIDE
     Indication: Renal impairment
     Route: 048
     Dates: start: 202302

REACTIONS (9)
  - Perineal swelling [Recovering/Resolving]
  - Joint swelling [Recovering/Resolving]
  - Gastrointestinal disorder [Recovered/Resolved]
  - Oedema peripheral [Recovering/Resolving]
  - Swelling face [Recovering/Resolving]
  - Ultrafiltration failure [Recovering/Resolving]
  - Pulmonary fibrosis [Recovering/Resolving]
  - Increased intraperitoneal volume [Recovering/Resolving]
  - Lung disorder [Recovering/Resolving]

NARRATIVE: CASE EVENT DATE: 20241115
